FAERS Safety Report 10427993 (Version 1)
Quarter: 2014Q3

REPORT INFORMATION
  Report Type: Spontaneous
  Country: DK (occurrence: DK)
  Receive Date: 20140903
  Receipt Date: 20140903
  Transmission Date: 20150326
  Serious: Yes (Hospitalization)
  Sender: FDA-Public Use
  Company Number: DK-WATSON-2014-18947

PATIENT
  Age: 21 Year
  Sex: Male

DRUGS (1)
  1. MIRTAZAPIN ACTAVIS (UNKNOWN) [Suspect]
     Active Substance: MIRTAZAPINE
     Indication: DEPRESSION
     Dosage: 30 MG, QHS (1 TABLET AT BEDTIME. STRENGTH: 30 MG)
     Route: 048
     Dates: start: 20140714

REACTIONS (1)
  - Hallucinations, mixed [Unknown]

NARRATIVE: CASE EVENT DATE: 20140719
